FAERS Safety Report 7812171-5 (Version None)
Quarter: 2011Q4

REPORT INFORMATION
  Report Type: 
  Country: None (occurrence: None)
  Receive Date: 20111013
  Receipt Date: 20110930
  Transmission Date: 20120403
  Serious: Yes (Death, Other)
  Sender: FDA-Public Use
  Company Number: PHHY2011EC87482

PATIENT
  Age: 43 Year
  Sex: Female

DRUGS (2)
  1. GLEEVEC [Suspect]
     Indication: CHRONIC MYELOID LEUKAEMIA
     Route: 048
  2. CHEMOTHERAPEUTICS [Concomitant]
     Dosage: UNK
     Dates: end: 20100225

REACTIONS (4)
  - DYSPNOEA [None]
  - CARDIO-RESPIRATORY ARREST [None]
  - CHOKING [None]
  - COMA [None]
